FAERS Safety Report 11417481 (Version 1)
Quarter: 2015Q3

REPORT INFORMATION
  Report Type: Spontaneous
  Country: US (occurrence: US)
  Receive Date: 20150825
  Receipt Date: 20150825
  Transmission Date: 20151125
  Serious: Yes (Hospitalization, Other)
  Sender: FDA-Public Use
  Company Number: US-TEVA-587507USA

PATIENT
  Age: 78 Year
  Sex: Female
  Weight: 124.7 kg

DRUGS (3)
  1. MIDODRINE [Suspect]
     Active Substance: MIDODRINE
     Indication: PRODUCT USED FOR UNKNOWN INDICATION
     Dosage: 30 MILLIGRAM DAILY;
     Route: 065
  2. TAFAMIDIS [Suspect]
     Active Substance: TAFAMIDIS MEGLUMINE
     Route: 065
  3. TORASEMIDE [Suspect]
     Active Substance: TORSEMIDE
     Indication: PRODUCT USED FOR UNKNOWN INDICATION
     Dosage: 200 MILLIGRAM DAILY;
     Route: 065

REACTIONS (5)
  - Fluid overload [Recovered/Resolved]
  - Urinary tract infection enterococcal [Unknown]
  - Pain in extremity [Unknown]
  - Cardiac failure congestive [Recovered/Resolved]
  - Pleural effusion [None]

NARRATIVE: CASE EVENT DATE: 20150726
